FAERS Safety Report 4851065-4 (Version None)
Quarter: 2005Q4

REPORT INFORMATION
  Report Type: 
  Country: None (occurrence: None)
  Receive Date: 20051208
  Receipt Date: 20051122
  Transmission Date: 20060501
  Serious: Yes (Hospitalization, Other)
  Sender: FDA-Public Use
  Company Number: 175817

PATIENT
  Age: 53 Year
  Sex: Female

DRUGS (9)
  1. AVONEX [Suspect]
     Indication: MULTIPLE SCLEROSIS
     Dosage: 30 UG; QW; IM
     Route: 030
     Dates: start: 19991201
  2. AVONEX [Suspect]
     Indication: MULTIPLE SCLEROSIS
     Dosage: 30 UG; QW; IM
     Route: 030
  3. AVALIDE [Concomitant]
  4. BEXTRA [Concomitant]
  5. SERZONE [Concomitant]
  6. NEURONTIN [Concomitant]
  7. BACLOFEN [Concomitant]
  8. ASPIRIN [Concomitant]
  9. PEPCID [Concomitant]

REACTIONS (10)
  - AMNESIA [None]
  - ARTHRITIS [None]
  - COLITIS [None]
  - COLON CANCER METASTATIC [None]
  - CONDITION AGGRAVATED [None]
  - DIZZINESS [None]
  - METASTASES TO LYMPH NODES [None]
  - MULTIPLE SCLEROSIS [None]
  - STRESS [None]
  - SUICIDAL IDEATION [None]
